FAERS Safety Report 12712905 (Version 1)
Quarter: 2016Q3

REPORT INFORMATION
  Report Type: Spontaneous
  Country: US (occurrence: US)
  Receive Date: 20160902
  Receipt Date: 20160902
  Transmission Date: 20161109
  Serious: No
  Sender: FDA-Public Use
  Company Number: US-TAKEDA-2016TUS015685

PATIENT
  Age: 62 Year
  Sex: Female
  Weight: 84.81 kg

DRUGS (1)
  1. CONTRAVE [Suspect]
     Active Substance: BUPROPION HYDROCHLORIDE\NALTREXONE HYDROCHLORIDE
     Indication: PRODUCT USED FOR UNKNOWN INDICATION
     Dosage: UNK
     Route: 065
     Dates: start: 20160830, end: 20160830

REACTIONS (2)
  - Chills [Unknown]
  - Feeling hot [Unknown]

NARRATIVE: CASE EVENT DATE: 20160830
